FAERS Safety Report 7701860-9 (Version None)
Quarter: 2011Q3

REPORT INFORMATION
  Report Type: 
  Country: None (occurrence: None)
  Receive Date: 20110822
  Receipt Date: 20110816
  Transmission Date: 20111222
  Serious: Yes (Other)
  Sender: FDA-Public Use
  Company Number: US-SANOFI-AVENTIS-2011SA052466

PATIENT
  Age: 50 Year
  Sex: Male

DRUGS (9)
  1. VITAMIN D [Concomitant]
     Dates: start: 20101018
  2. LOVENOX [Suspect]
     Indication: PULMONARY EMBOLISM
     Route: 065
     Dates: start: 20110328
  3. CARBOPLATIN [Suspect]
     Indication: SQUAMOUS CELL CARCINOMA
     Route: 065
     Dates: start: 20101115, end: 20110606
  4. MULTI-VITAMINS [Concomitant]
     Dates: start: 20101001
  5. METFORMIN HCL [Concomitant]
     Dates: start: 20101101
  6. INVESTIGATIONAL DRUG [Suspect]
     Indication: SQUAMOUS CELL CARCINOMA
     Route: 065
     Dates: start: 20101115, end: 20110606
  7. TAXOL [Suspect]
     Indication: SQUAMOUS CELL CARCINOMA
     Route: 065
     Dates: start: 20101115, end: 20110606
  8. LOPERAMIDE HYDROCHLORIDE [Concomitant]
     Dates: start: 20101115
  9. RAMIPRIL [Concomitant]
     Dates: start: 20101001

REACTIONS (3)
  - VITREOUS HAEMORRHAGE [None]
  - METASTASES TO LIVER [None]
  - VISUAL ACUITY REDUCED [None]
